FAERS Safety Report 4543966-1 (Version None)
Quarter: 2005Q1

REPORT INFORMATION
  Report Type: 
  Country: None (occurrence: None)
  Receive Date: 20050103
  Receipt Date: 20031027
  Transmission Date: 20050727
  Serious: Yes (Hospitalization)
  Sender: FDA-Public Use
  Company Number: GXKR2003GB00521

PATIENT
  Age: 49 Year
  Sex: Female

DRUGS (5)
  1. DIAZEPAM [Suspect]
  2. EPILIM (VALPROATE SODIUM) [Suspect]
     Indication: EPILEPSY
     Dosage: 6 G
     Dates: start: 20030808, end: 20030808
  3. IBUPROFEN [Suspect]
  4. LANSOPRAZOLE [Suspect]
  5. CLOZAPINE [Concomitant]

REACTIONS (6)
  - COORDINATION ABNORMAL [None]
  - DISTURBANCE IN ATTENTION [None]
  - FEELING HOT [None]
  - HYPERHIDROSIS [None]
  - MULTIPLE DRUG OVERDOSE [None]
  - SOMNOLENCE [None]
